FAERS Safety Report 6628045-1 (Version None)
Quarter: 2010Q1

REPORT INFORMATION
  Report Type: 
  Country: None (occurrence: None)
  Receive Date: 20100311
  Receipt Date: 20090723
  Transmission Date: 20100710
  Serious: No
  Sender: FDA-Public Use
  Company Number: A0798532A

PATIENT

DRUGS (1)
  1. NICORETTE [Suspect]
     Dates: start: 20080620

REACTIONS (1)
  - INTENTIONAL DRUG MISUSE [None]
